FAERS Safety Report 5135562-2 (Version None)
Quarter: 2006Q4

REPORT INFORMATION
  Report Type: 
  Country: None (occurrence: None)
  Receive Date: 20061020
  Receipt Date: 20061007
  Transmission Date: 20070319
  Serious: Yes (Other)
  Sender: FDA-Public Use
  Company Number: 2006124738

PATIENT
  Age: 31 Year
  Sex: Female
  Weight: 58.9676 kg

DRUGS (6)
  1. CHANTIX [Suspect]
     Indication: SMOKING CESSATION THERAPY
     Dosage: 0.5 MG (0.5 MG, 1 IN 1 D)
     Dates: start: 20061004, end: 20061006
  2. SEROQUEL [Concomitant]
  3. HYDROCHLOROTHIAZIDE [Concomitant]
  4. POTASSIUM (POTASSIM) [Concomitant]
  5. WELLBUTRIN (BUPROPIUM HYDROCHLORIDE) [Concomitant]
  6. LITHIUM CARBONATE [Concomitant]

REACTIONS (2)
  - LYMPH NODE PAIN [None]
  - LYMPHADENOPATHY [None]
